FAERS Safety Report 10501691 (Version 1)
Quarter: 2014Q4

REPORT INFORMATION
  Report Type: Spontaneous
  Country: US (occurrence: None)
  Receive Date: 20141006
  Receipt Date: 20141006
  Transmission Date: 20150528
  Serious: No
  Sender: FDA-Public Use
  Company Number: None

PATIENT
  Age: 79 Year
  Sex: Male
  Weight: 104.5 kg

DRUGS (2)
  1. APIXABAN [Suspect]
     Active Substance: APIXABAN
     Indication: ATRIAL FIBRILLATION
     Route: 048
     Dates: start: 20140521, end: 20140521
  2. APIXABAN [Suspect]
     Active Substance: APIXABAN
     Indication: MITRAL VALVE REPAIR
     Route: 048
     Dates: start: 20140521, end: 20140521

REACTIONS (3)
  - Increased tendency to bruise [None]
  - Dizziness [None]
  - Product substitution issue [None]

NARRATIVE: CASE EVENT DATE: 20140521
